FAERS Safety Report 7429204-0 (Version None)
Quarter: 2011Q2

REPORT INFORMATION
  Report Type: 
  Country: None (occurrence: None)
  Receive Date: 20110421
  Receipt Date: 20110412
  Transmission Date: 20111010
  Serious: Yes (Death, Hospitalization, Other)
  Sender: FDA-Public Use
  Company Number: US-SANOFI-AVENTIS-2011SA001298

PATIENT
  Age: 90 Year
  Sex: Female
  Weight: 163 kg

DRUGS (7)
  1. PLAVIX [Suspect]
     Route: 048
     Dates: start: 20020101, end: 20100410
  2. LIPITOR [Concomitant]
     Dates: start: 20020101, end: 20100410
  3. TOPAMAX [Concomitant]
     Indication: EPILEPSY
  4. KLOR-CON [Concomitant]
     Dates: start: 20080101, end: 20100410
  5. ANTIHYPERTENSIVES [Concomitant]
  6. HYDROCHLOROTHIAZIDE [Concomitant]
     Indication: BLOOD PRESSURE
     Dates: start: 20070101, end: 20100410
  7. ACIPHEX [Concomitant]
     Dates: end: 20100410

REACTIONS (3)
  - ARTERIAL OCCLUSIVE DISEASE [None]
  - DIZZINESS [None]
  - HAEMORRHAGIC STROKE [None]
